FAERS Safety Report 6327820-0 (Version None)
Quarter: 2009Q3

REPORT INFORMATION
  Report Type: 
  Country: None (occurrence: None)
  Receive Date: 20090824
  Receipt Date: 20090807
  Transmission Date: 20100115
  Serious: Yes (Life-Threatening)
  Sender: FDA-Public Use
  Company Number: 2008-188271-NL

PATIENT
  Age: 3 Year

DRUGS (2)
  1. VECURONIUM BROMIDE [Suspect]
     Dosage: ; ONCE;
  2. SODIUM CHLORIDE [Suspect]

REACTIONS (5)
  - DRUG ADMINISTRATION ERROR [None]
  - FEAR [None]
  - HYPOTONIA [None]
  - RESPIRATORY ARREST [None]
  - WRONG DRUG ADMINISTERED [None]
